FAERS Safety Report 17121111 (Version 1)
Quarter: 2019Q4

REPORT INFORMATION
  Report Type: Spontaneous
  Country: US (occurrence: US)
  Receive Date: 20191206
  Receipt Date: 20191206
  Transmission Date: 20200122
  Serious: No
  Sender: FDA-Public Use
  Company Number: US-UCBSA-2017024732

PATIENT
  Age: 2 Day
  Sex: Female

DRUGS (2)
  1. OXCARBAZEPINE. [Concomitant]
     Active Substance: OXCARBAZEPINE
     Indication: NEONATAL SEIZURE
     Dosage: UNKNOWN DOSE
  2. LEVETIRACETAM. [Suspect]
     Active Substance: LEVETIRACETAM
     Indication: NEONATAL SEIZURE
     Dosage: UNKNOWN DOSE

REACTIONS (7)
  - Seizure [Recovered/Resolved]
  - Antisocial behaviour [Unknown]
  - Behaviour disorder [Unknown]
  - Eye movement disorder [Unknown]
  - Sleep disorder [Unknown]
  - Visual impairment [Unknown]
  - Musculoskeletal stiffness [Unknown]
